FAERS Safety Report 4788411-6 (Version None)
Quarter: 2005Q4

REPORT INFORMATION
  Report Type: 
  Country: None (occurrence: None)
  Receive Date: 20051005
  Receipt Date: 20050921
  Transmission Date: 20060501
  Serious: Yes (Congenital Anomaly)
  Sender: FDA-Public Use
  Company Number: GBWYE995921SEP05

PATIENT
  Sex: Female

DRUGS (5)
  1. ENBREL [Suspect]
     Indication: DRUG USE FOR UNKNOWN INDICATION
     Dosage: UNKNOWN
     Dates: start: 20030804
  2. METHOTREXATE [Suspect]
     Dates: start: 19970715
  3. PREDNISOLONE [Concomitant]
     Dosage: UNKNOWN
     Route: 064
  4. FOLIC ACID [Concomitant]
     Dosage: UNKNOWN
     Route: 064
  5. FOSAMAX [Concomitant]
     Dosage: UNKNOWN
     Route: 064

REACTIONS (3)
  - ABORTION INDUCED [None]
  - ANENCEPHALY [None]
  - DRUG EXPOSURE DURING PREGNANCY [None]
